FAERS Safety Report 5145837-9 (Version None)
Quarter: 2006Q4

REPORT INFORMATION
  Report Type: 
  Country: None (occurrence: None)
  Receive Date: 20061108
  Receipt Date: 20061027
  Transmission Date: 20070319
  Serious: Yes (Hospitalization)
  Sender: FDA-Public Use
  Company Number: FR-JNJFOC-20061101379

PATIENT
  Age: 76 Year
  Sex: Female

DRUGS (6)
  1. TOPALGIC [Suspect]
     Indication: PAIN
     Route: 048
  2. LEVOTHYROXINE SODIUM [Concomitant]
     Indication: HYPOTHYROIDISM
     Route: 048
  3. APROVEL [Concomitant]
     Indication: PULMONARY HYPERTENSION
     Route: 048
  4. LASIX [Concomitant]
     Indication: PULMONARY HYPERTENSION
     Route: 048
  5. DEROXAT [Concomitant]
     Indication: ANXIETY
     Route: 048
  6. NOVATREX [Concomitant]
     Indication: TEMPORAL ARTERITIS
     Route: 048

REACTIONS (4)
  - ARTHRALGIA [None]
  - DIARRHOEA [None]
  - DYSPNOEA [None]
  - VOMITING [None]
